FAERS Safety Report 5756369-9 (Version None)
Quarter: 2008Q2

REPORT INFORMATION
  Report Type: 
  Country: None (occurrence: None)
  Receive Date: 20080528
  Receipt Date: 20080528
  Transmission Date: 20081010
  Serious: No
  Sender: FDA-Public Use
  Company Number: None

PATIENT
  Age: 46 Year
  Sex: Male
  Weight: 82 kg

DRUGS (1)
  1. VARENICLINE [Suspect]
     Indication: EX-SMOKER
     Dosage: 1 MG BID PO
     Route: 048
     Dates: start: 20080411, end: 20080527

REACTIONS (2)
  - AGGRESSION [None]
  - AGITATION [None]
